FAERS Safety Report 20022143 (Version 2)
Quarter: 2025Q4

REPORT INFORMATION
  Report Type: Spontaneous
  Country: EU (occurrence: None)
  Receive Date: 20211102
  Receipt Date: 20251226
  Transmission Date: 20260117
  Serious: Yes (Hospitalization, Other)
  Sender: AUROBINDO
  Company Number: EU-ITALFARMACO-2021-001172

PATIENT
  Age: 56 Year
  Sex: Female

DRUGS (5)
  1. ZOLPIDEM [Suspect]
     Active Substance: ZOLPIDEM TARTRATE
     Indication: Generalised anxiety disorder
     Dosage: 300 MILLIGRAM, DAILY
     Route: 061
  2. levotiroxine 66 [Concomitant]
     Indication: Autoimmune thyroiditis
     Dosage: 100 MICROGRAM, DAILY
     Route: 065
  3. levotiroxine 66 [Concomitant]
     Dosage: 30 OR 40 MG EVERY 3 HRS
     Route: 065
  4. levotiroxine 66 [Concomitant]
     Dosage: 150 MICROGRAM, DAILY
     Route: 065
  5. PREGABALIN1 [Concomitant]
     Indication: Product used for unknown indication
     Dosage: UNK
     Route: 065

REACTIONS (12)
  - Drug dependence [Unknown]
  - Drug abuse [Unknown]
  - Rebound effect [Unknown]
  - Intentional product misuse [Unknown]
  - Withdrawal syndrome [Unknown]
  - Chills [Unknown]
  - Hyperhidrosis [Unknown]
  - Confusional state [Unknown]
  - Asthenia [Unknown]
  - Nausea [Unknown]
  - Dysphoria [Unknown]
  - Insomnia [Unknown]
